FAERS Safety Report 5679909-7 (Version None)
Quarter: 2008Q1

REPORT INFORMATION
  Report Type: 
  Country: None (occurrence: None)
  Receive Date: 20080324
  Receipt Date: 20080318
  Transmission Date: 20080703
  Serious: Yes (Other)
  Sender: FDA-Public Use
  Company Number: 2008SP005442

PATIENT
  Age: 32 Year
  Sex: Male

DRUGS (2)
  1. REBETOL [Suspect]
     Indication: HEPATITIS C
     Dosage: 1200 MG; PO
     Route: 048
     Dates: start: 20070914, end: 20080313
  2. PEGASYS [Suspect]
     Indication: HEPATITIS C
     Dosage: 180 MCG; SC
     Route: 058
     Dates: start: 20070914, end: 20080307

REACTIONS (1)
  - VISUAL FIELD DEFECT [None]
